FAERS Safety Report 7813313-8 (Version None)
Quarter: 2011Q4

REPORT INFORMATION
  Report Type: 
  Country: None (occurrence: None)
  Receive Date: 20111013
  Receipt Date: 20111004
  Transmission Date: 20120403
  Serious: Yes (Other)
  Sender: FDA-Public Use
  Company Number: US-ASTRAZENECA-2011SE46325

PATIENT
  Age: 60 Year
  Sex: Male

DRUGS (8)
  1. LISINOPRIL AND HYDROCHLOROTHIAZIDE [Suspect]
     Dosage: 10/12.5 MG DAILY
     Route: 048
  2. TOPROL-XL [Suspect]
     Route: 048
  3. NOVOLOG [Concomitant]
  4. OMEPRAZOLE [Suspect]
     Route: 048
  5. HYDROCODONE BITARTRATE [Concomitant]
     Dosage: AS NEEDED
  6. GLUCOPHAGE [Concomitant]
  7. COUMADIN [Concomitant]
  8. ACTOS [Concomitant]

REACTIONS (3)
  - CHEST DISCOMFORT [None]
  - ROAD TRAFFIC ACCIDENT [None]
  - NERVOUSNESS [None]
